FAERS Safety Report 18041527 (Version 6)
Quarter: 2021Q1

REPORT INFORMATION
  Report Type: Spontaneous
  Country: NL (occurrence: NL)
  Receive Date: 20200720
  Receipt Date: 20210118
  Transmission Date: 20210419
  Serious: Yes (Hospitalization)
  Sender: FDA-Public Use
  Company Number: NL-BAUSCH-BL-2020-017846

PATIENT
  Age: 58 Year
  Sex: Female
  Weight: 99 kg

DRUGS (22)
  1. HYALURON [Concomitant]
     Indication: URTICARIA
  2. CLINDAMYCIN. [Suspect]
     Active Substance: CLINDAMYCIN
     Dosage: DOSE INCREASED
     Route: 065
  3. DESLORATADINE. [Concomitant]
     Active Substance: DESLORATADINE
     Indication: URTICARIA
  4. TRIAMCINOLONACETONIDE [Concomitant]
     Active Substance: TRIAMCINOLONE ACETONIDE
     Indication: URTICARIA
  5. FUSIDIC ACID [Concomitant]
     Active Substance: FUSIDIC ACID
     Indication: PRODUCT USED FOR UNKNOWN INDICATION
     Dosage: APPLY 3 X PER DAY
  6. SARILUMAB [Suspect]
     Active Substance: SARILUMAB
     Indication: RHEUMATOID ARTHRITIS
     Dosage: 200 MG, QOW
     Route: 065
     Dates: start: 20200305, end: 20200508
  7. TRIAMCINOLONACETONIDE [Concomitant]
     Active Substance: TRIAMCINOLONE ACETONIDE
     Indication: PRURITUS
     Dosage: 1 MG, BID
     Route: 061
     Dates: start: 20200530, end: 2020
  8. SARILUMAB [Suspect]
     Active Substance: SARILUMAB
     Dosage: 150 MG, QOW
     Route: 065
     Dates: start: 20200608
  9. HYALURON [Concomitant]
     Indication: PRURITUS
     Dosage: 0.15 MG, TID; 1 DROP 3 X PER DAY
     Route: 031
     Dates: start: 20200602, end: 2020
  10. PARACETAMOL [Concomitant]
     Active Substance: ACETAMINOPHEN
     Indication: PAIN
     Dosage: AS REQUIRED
     Route: 048
     Dates: start: 20200602
  11. CALCIUM CARBONATE W/VITAMIN D [Concomitant]
     Active Substance: CALCIUM CARBONATE\VITAMIN D
     Indication: OSTEOPOROSIS
     Route: 048
     Dates: start: 20200602
  12. CEFTRIAXONE. [Concomitant]
     Active Substance: CEFTRIAXONE
     Indication: PRODUCT USED FOR UNKNOWN INDICATION
  13. SARILUMAB [Suspect]
     Active Substance: SARILUMAB
     Dosage: 200 MG, QOW
     Route: 065
     Dates: start: 20200509, end: 20200607
  14. OMEPRAZOLE. [Concomitant]
     Active Substance: OMEPRAZOLE
     Indication: GASTRIC DISORDER
     Route: 048
     Dates: start: 20200530
  15. HYDROXYCHLOROQUINE [Concomitant]
     Active Substance: HYDROXYCHLOROQUINE
     Indication: RHEUMATOID ARTHRITIS
     Route: 048
     Dates: start: 2013, end: 20200402
  16. BETAMETASONE [Concomitant]
     Active Substance: BETAMETHASONE
     Indication: PRURITUS
     Dosage: 1 MG, BID
     Route: 061
     Dates: start: 20200602, end: 2020
  17. FUCIDINE [Concomitant]
     Indication: IMPETIGO
     Dosage: 1 MG, TID
     Route: 061
     Dates: start: 20200602
  18. PREDNISON [Concomitant]
     Active Substance: PREDNISONE
     Indication: PYODERMA GANGRENOSUM
     Route: 048
     Dates: start: 20181001
  19. DESLORATADINE. [Concomitant]
     Active Substance: DESLORATADINE
     Indication: HYPERSENSITIVITY
     Dosage: AS REQUIRED
     Route: 048
     Dates: start: 20200602
  20. CLINDAMYCIN. [Suspect]
     Active Substance: CLINDAMYCIN
     Indication: PRODUCT USED FOR UNKNOWN INDICATION
     Route: 065
  21. CLOBETASOL [Concomitant]
     Active Substance: CLOBETASOL
     Indication: PRODUCT USED FOR UNKNOWN INDICATION
     Dosage: 0.25 MG/ML, QD
     Route: 048
     Dates: start: 20200602, end: 2020
  22. BETAMETASONE [Concomitant]
     Active Substance: BETAMETHASONE
     Indication: URTICARIA

REACTIONS (2)
  - Injection site extravasation [Unknown]
  - Upper respiratory tract infection bacterial [Recovered/Resolved]

NARRATIVE: CASE EVENT DATE: 2020
